FAERS Safety Report 17930929 (Version 1)
Quarter: 2020Q2

REPORT INFORMATION
  Report Type: Spontaneous
  Country: US (occurrence: US)
  Receive Date: 20200623
  Receipt Date: 20200623
  Transmission Date: 20200714
  Serious: Yes (Other)
  Sender: FDA-Public Use
  Company Number: US-GILEAD-2020-0472715

PATIENT
  Age: 40 Year
  Sex: Male
  Weight: 91.8 kg

DRUGS (14)
  1. LASIX [Concomitant]
     Active Substance: FUROSEMIDE
  2. REMDESIVIR. [Suspect]
     Active Substance: REMDESIVIR
     Indication: COVID-19
     Dosage: UNK
     Route: 042
     Dates: start: 20200528, end: 20200602
  3. MEROPENEM. [Concomitant]
     Active Substance: MEROPENEM
  4. ATORVASTATIN [Concomitant]
     Active Substance: ATORVASTATIN
  5. ENOXAPARIN [Concomitant]
     Active Substance: ENOXAPARIN
  6. TOCILIZUMAB. [Concomitant]
     Active Substance: TOCILIZUMAB
  7. CEFEPIME [Concomitant]
     Active Substance: CEFEPIME HYDROCHLORIDE
  8. MONTELUKAST [Concomitant]
     Active Substance: MONTELUKAST SODIUM
  9. AZITHROMYCIN ANHYDROUS. [Concomitant]
     Active Substance: AZITHROMYCIN ANHYDROUS
  10. SOLU-MEDROL [Concomitant]
     Active Substance: METHYLPREDNISOLONE SODIUM SUCCINATE
  11. ZINC SULFATE. [Concomitant]
     Active Substance: ZINC SULFATE
  12. PANTOPRAZOLE [Concomitant]
     Active Substance: PANTOPRAZOLE
  13. VANCOMYCIN [Concomitant]
     Active Substance: VANCOMYCIN
  14. HUMALOG [Concomitant]
     Active Substance: INSULIN LISPRO

REACTIONS (1)
  - Blood creatinine increased [Recovered/Resolved]

NARRATIVE: CASE EVENT DATE: 20200531
